FAERS Safety Report 21754332 (Version 1)
Quarter: 2022Q4

REPORT INFORMATION
  Report Type: Spontaneous
  Country: US (occurrence: US)
  Receive Date: 20221220
  Receipt Date: 20221220
  Transmission Date: 20230113
  Serious: No
  Sender: FDA-Public Use
  Company Number: US-BRISTOL-MYERS SQUIBB COMPANY-2022-155901

PATIENT
  Age: 54 Year
  Sex: Female
  Weight: 168.28 kg

DRUGS (2)
  1. ELIQUIS [Suspect]
     Active Substance: APIXABAN
     Indication: Thrombosis prophylaxis
     Route: 048
     Dates: start: 20221216
  2. OXYCODONE [Concomitant]
     Active Substance: OXYCODONE
     Indication: Muscle spasms

REACTIONS (2)
  - Treatment noncompliance [Unknown]
  - Somnolence [Unknown]

NARRATIVE: CASE EVENT DATE: 20221219
